FAERS Safety Report 21329344 (Version 1)
Quarter: 2022Q3

REPORT INFORMATION
  Report Type: Spontaneous
  Country: US (occurrence: None)
  Receive Date: 20220913
  Receipt Date: 20220913
  Transmission Date: 20221027
  Serious: Yes (Hospitalization)
  Sender: FDA-Public Use
  Company Number: None

PATIENT
  Age: 79 Year
  Sex: Male
  Weight: 77.11 kg

DRUGS (2)
  1. ADALIMUMAB [Suspect]
     Active Substance: ADALIMUMAB
     Indication: Crohn^s disease
     Dosage: 80 MG SQ
     Route: 058
     Dates: start: 20161106, end: 20211001
  2. METHOTREXATE SODIUM [Suspect]
     Active Substance: METHOTREXATE SODIUM
     Indication: Crohn^s disease
     Dosage: 15 MG QWEEK PO
     Dates: start: 20170817

REACTIONS (4)
  - Rhinovirus infection [None]
  - Lymphadenopathy [None]
  - Pulmonary mass [None]
  - Pleural effusion [None]

NARRATIVE: CASE EVENT DATE: 20210730
